FAERS Safety Report 9269448 (Version 2)
Quarter: 2013Q2

REPORT INFORMATION
  Report Type: Spontaneous
  Country: JP (occurrence: JP)
  Receive Date: 20130503
  Receipt Date: 20130513
  Transmission Date: 20140414
  Serious: Yes (Death, Other)
  Sender: FDA-Public Use
  Company Number: JP-ROCHE-1218804

PATIENT
  Age: 61 Year
  Sex: Female

DRUGS (2)
  1. CELLCEPT [Suspect]
     Indication: KIDNEY TRANSPLANT REJECTION
     Dosage: DOSAGE IS UNCERTAIN.
     Route: 048
     Dates: start: 200201, end: 201202
  2. TACROLIMUS [Concomitant]
     Indication: KIDNEY TRANSPLANT REJECTION
     Dosage: DOSAGE IS UNCERTAIN.
     Route: 065

REACTIONS (5)
  - Cardiac failure [Fatal]
  - Renal failure acute [Fatal]
  - Arthritis infective [Unknown]
  - Septic shock [Unknown]
  - Hypovolaemic shock [Unknown]
